FAERS Safety Report 22629728 (Version 1)
Quarter: 2023Q2

REPORT INFORMATION
  Report Type: Spontaneous
  Country: AU (occurrence: AU)
  Receive Date: 20230622
  Receipt Date: 20230622
  Transmission Date: 20230722
  Serious: No
  Sender: FDA-Public Use
  Company Number: AU-PHARMAMAR-2023PM000177

PATIENT

DRUGS (2)
  1. ZEPZELCA [Suspect]
     Active Substance: LURBINECTEDIN
     Indication: Product used for unknown indication
     Route: 042
  2. ZEPZELCA [Suspect]
     Active Substance: LURBINECTEDIN
     Dosage: UNK
     Route: 042

REACTIONS (1)
  - Therapy cessation [Unknown]
